FAERS Safety Report 7726566-1 (Version None)
Quarter: 2011Q3

REPORT INFORMATION
  Report Type: 
  Country: None (occurrence: None)
  Receive Date: 20110902
  Receipt Date: 20110824
  Transmission Date: 20111222
  Serious: Yes (Other)
  Sender: FDA-Public Use
  Company Number: PHHY2011JP70500

PATIENT
  Age: 67 Year
  Sex: Male

DRUGS (7)
  1. LAMICTAL [Suspect]
     Dosage: 300 MG, PER DAY
  2. ZONISAMIDE [Concomitant]
     Dosage: 200 MG, PER DAY
     Dates: start: 20080101, end: 20080101
  3. TEGRETOL [Suspect]
     Indication: EPILEPSY
     Dosage: 1200 MG, DAILY
  4. TEGRETOL [Suspect]
     Dosage: 150 MG, DAILY
  5. TOPIRAMATE [Suspect]
     Dosage: 100 MG, UNK
  6. TEGRETOL [Suspect]
     Dosage: 300 MG, DAILY
  7. GABAPENTIN [Concomitant]
     Dosage: 600 MG, PER DAY
     Dates: start: 20080101, end: 20080101

REACTIONS (7)
  - ASTHENIA [None]
  - CONVULSION [None]
  - MALAISE [None]
  - DISTURBANCE IN ATTENTION [None]
  - AFFECTIVE DISORDER [None]
  - SOMNOLENCE [None]
  - FEELING ABNORMAL [None]
